FAERS Safety Report 8403133-8 (Version None)
Quarter: 2012Q2

REPORT INFORMATION
  Report Type: 
  Country: None (occurrence: None)
  Receive Date: 20120601
  Receipt Date: 20120525
  Transmission Date: 20120825
  Serious: Yes (Death, Hospitalization, Other)
  Sender: FDA-Public Use
  Company Number: PL-JNJFOC-20090902413

PATIENT
  Sex: Female
  Weight: 53 kg

DRUGS (50)
  1. GOLIMUMAB [Suspect]
     Indication: RHEUMATOID ARTHRITIS
     Route: 058
     Dates: start: 20070323
  2. GOLIMUMAB [Suspect]
     Route: 058
     Dates: start: 20070524
  3. GOLIMUMAB [Suspect]
     Route: 058
     Dates: start: 20070712
  4. GOLIMUMAB [Suspect]
     Route: 058
     Dates: start: 20080303
  5. GOLIMUMAB [Suspect]
     Route: 058
     Dates: start: 20080401
  6. GOLIMUMAB [Suspect]
     Route: 058
     Dates: start: 20090710
  7. GOLIMUMAB [Suspect]
     Route: 058
     Dates: start: 20070104
  8. INFA-TARDYFERON [Concomitant]
     Route: 048
     Dates: start: 20081212, end: 20090731
  9. GOLIMUMAB [Suspect]
     Route: 058
     Dates: start: 20070416
  10. GOLIMUMAB [Suspect]
     Route: 058
     Dates: start: 20080201
  11. GOLIMUMAB [Suspect]
     Route: 058
     Dates: start: 20090612
  12. GOLIMUMAB [Suspect]
     Route: 058
     Dates: start: 20070126
  13. GOLIMUMAB [Suspect]
     Route: 058
     Dates: start: 20061005
  14. GOLIMUMAB [Suspect]
     Route: 058
     Dates: start: 20071012
  15. GOLIMUMAB [Suspect]
     Route: 058
     Dates: start: 20080115
  16. GOLIMUMAB [Suspect]
     Route: 058
     Dates: start: 20080915
  17. GOLIMUMAB [Suspect]
     Route: 058
     Dates: start: 20090417
  18. GOLIMUMAB [Suspect]
     Route: 058
     Dates: start: 20061106
  19. GOLIMUMAB [Suspect]
     Route: 058
     Dates: start: 20080617
  20. FOLIC ACID [Concomitant]
     Route: 048
     Dates: start: 20031027, end: 20090820
  21. GOLIMUMAB [Suspect]
     Route: 058
     Dates: start: 20071115
  22. GOLIMUMAB [Suspect]
     Route: 058
     Dates: start: 20080808
  23. GOLIMUMAB [Suspect]
     Route: 058
     Dates: start: 20090814
  24. METHOTREXATE [Suspect]
     Indication: RHEUMATOID ARTHRITIS
     Route: 048
     Dates: start: 20060627, end: 20060711
  25. OMEPRAZOLE [Concomitant]
     Route: 048
     Dates: start: 20081212, end: 20090901
  26. GOLIMUMAB [Suspect]
     Route: 058
     Dates: start: 20060714
  27. GOLIMUMAB [Suspect]
     Route: 058
     Dates: start: 20081003
  28. GOLIMUMAB [Suspect]
     Route: 058
     Dates: start: 20081201
  29. METOCARD [Concomitant]
     Route: 048
     Dates: start: 20060301
  30. OMEPRAZOLE [Concomitant]
     Route: 048
     Dates: start: 20090902
  31. GOLIMUMAB [Suspect]
     Route: 058
     Dates: start: 20070622
  32. GOLIMUMAB [Suspect]
     Route: 058
     Dates: start: 20070912
  33. GOLIMUMAB [Suspect]
     Route: 058
     Dates: start: 20071219
  34. GOLIMUMAB [Suspect]
     Route: 058
     Dates: start: 20080517
  35. GOLIMUMAB [Suspect]
     Route: 058
     Dates: start: 20081031
  36. GOLIMUMAB [Suspect]
     Route: 058
     Dates: start: 20090123
  37. GOLIMUMAB [Suspect]
     Route: 058
     Dates: start: 20090513
  38. GOLIMUMAB [Suspect]
     Route: 058
     Dates: start: 20060821
  39. GOLIMUMAB [Suspect]
     Route: 058
     Dates: start: 20070820
  40. GOLIMUMAB [Suspect]
     Route: 058
     Dates: start: 20080418
  41. GOLIMUMAB [Suspect]
     Route: 058
     Dates: start: 20080711
  42. GOLIMUMAB [Suspect]
     Route: 058
     Dates: start: 20081226
  43. GOLIMUMAB [Suspect]
     Route: 058
     Dates: start: 20090227
  44. GOLIMUMAB [Suspect]
     Route: 058
     Dates: start: 20090320
  45. GOLIMUMAB [Suspect]
     Route: 058
     Dates: start: 20070302
  46. GOLIMUMAB [Suspect]
     Route: 058
     Dates: start: 20061130
  47. GOLIMUMAB [Suspect]
     Route: 058
     Dates: start: 20060907
  48. METHOTREXATE [Suspect]
     Route: 048
     Dates: start: 20060718, end: 20080617
  49. METHOTREXATE [Concomitant]
     Route: 048
     Dates: start: 20080618, end: 20090820
  50. METHOTREXATE [Concomitant]
     Route: 048
     Dates: start: 20091015

REACTIONS (2)
  - LYMPHOPROLIFERATIVE DISORDER [None]
  - EPSTEIN-BARR VIRUS INFECTION [None]
